FAERS Safety Report 21544106 (Version 1)
Quarter: 2022Q4

REPORT INFORMATION
  Report Type: Spontaneous
  Country: US (occurrence: US)
  Receive Date: 20221102
  Receipt Date: 20221102
  Transmission Date: 20230113
  Serious: No
  Sender: FDA-Public Use
  Company Number: US-ELI_LILLY_AND_COMPANY-US202211000193

PATIENT
  Sex: Female

DRUGS (4)
  1. ADCIRCA [Suspect]
     Active Substance: TADALAFIL
     Indication: Pulmonary arterial hypertension
     Dosage: 40 MG, DAILY
     Route: 048
     Dates: start: 20220928
  2. ADCIRCA [Suspect]
     Active Substance: TADALAFIL
     Dosage: 20 MG, QOD
     Route: 048
  3. ADCIRCA [Suspect]
     Active Substance: TADALAFIL
     Dosage: 20 MG, DAILY
     Route: 048
  4. ADCIRCA [Suspect]
     Active Substance: TADALAFIL
     Dosage: 20 MG, BID (IN THE MORNING AND EVENING)
     Route: 048

REACTIONS (6)
  - Swelling [Unknown]
  - Tremor [Unknown]
  - Paraesthesia [Unknown]
  - Swelling face [Unknown]
  - Palpitations [Unknown]
  - Heart rate increased [Unknown]
